FAERS Safety Report 7097149-4 (Version None)
Quarter: 2010Q4

REPORT INFORMATION
  Report Type: 
  Country: None (occurrence: None)
  Receive Date: 20101111
  Receipt Date: 20101104
  Transmission Date: 20110411
  Serious: Yes (Hospitalization, Other)
  Sender: FDA-Public Use
  Company Number: US-AMGEN-QUU382839

PATIENT

DRUGS (10)
  1. ENBREL [Suspect]
     Indication: RHEUMATOID ARTHRITIS
     Dosage: 50 MG, QWK
     Route: 058
     Dates: start: 20061228, end: 20100907
  2. ENBREL [Suspect]
     Dates: start: 20061228, end: 20100907
  3. ESOMEPRAZOLE MAGNESIUM [Concomitant]
     Dosage: 40 MG, QD
  4. LISINOPRIL [Concomitant]
     Dosage: 20 MG, QD
  5. ALPRAZOLAM [Concomitant]
     Dosage: .25 MG, UNK
  6. GLUCOSAMINE [Concomitant]
  7. ASPIRIN [Concomitant]
  8. MULTI-VITAMINS [Concomitant]
  9. ATORVASTATIN CALCIUM [Concomitant]
     Dosage: 20 MG, QD
  10. ACETAMINOPHEN AND HYDROCODONE BITARTRATE [Concomitant]

REACTIONS (25)
  - ANGIOEDEMA [None]
  - ARTHRALGIA [None]
  - BACK PAIN [None]
  - BLOOD PRESSURE INCREASED [None]
  - BURSITIS [None]
  - CELLULITIS [None]
  - COUGH [None]
  - DIARRHOEA [None]
  - DYSPNOEA [None]
  - EYE SWELLING [None]
  - HYPOAESTHESIA [None]
  - INFECTION [None]
  - INJECTION SITE PAIN [None]
  - JOINT SWELLING [None]
  - LATEX ALLERGY [None]
  - LIP SWELLING [None]
  - NECK PAIN [None]
  - OSTEOARTHRITIS [None]
  - PAIN IN EXTREMITY [None]
  - PARAESTHESIA [None]
  - RASH [None]
  - RHEUMATOID ARTHRITIS [None]
  - SINUSITIS [None]
  - UPPER RESPIRATORY TRACT INFECTION [None]
  - URTICARIA [None]
